FAERS Safety Report 9720922 (Version 1)
Quarter: 2013Q4

REPORT INFORMATION
  Report Type: Spontaneous
  Country: FR (occurrence: FR)
  Receive Date: 20131129
  Receipt Date: 20131129
  Transmission Date: 20140711
  Serious: Yes (Death)
  Sender: FDA-Public Use
  Company Number: PHHY2013FR134549

PATIENT
  Sex: Male

DRUGS (11)
  1. BACLOFEN [Suspect]
     Indication: ALCOHOL WITHDRAWAL SYNDROME
     Dosage: 4 DF, TID
     Route: 048
     Dates: start: 201303
  2. ALLOPURINOL [Suspect]
     Dosage: UNK UKN, UNK
     Route: 048
  3. ADANCOR [Suspect]
     Dosage: UNK UKN, UNK
     Route: 048
  4. PLAVIX [Suspect]
     Dosage: UNK UKN, UNK
     Route: 048
  5. BI TILDIEM (DILTIAZEM HYDROCHLORIDE) (300 MILLIGRAM, UNKNOWN) (DILTIAZEM HYDROCHLORIDE) [Suspect]
     Dosage: UNK UKN, UNK
     Route: 048
  6. TAHOR [Suspect]
     Dosage: UNK UKN, UNK
     Route: 048
  7. INEXIUM//ESOMEPRAZOLE SODIUM [Suspect]
     Dosage: 40 MG, QD
     Route: 048
  8. ZOPICLONE [Suspect]
     Dosage: UNK UKN, UNK
     Route: 048
  9. NITRIDERM [Suspect]
     Dosage: UNK UKN, UNK
     Route: 062
  10. PROZAC [Suspect]
     Dosage: UNK UKN, UNK
     Route: 048
  11. ALTEIS [Suspect]
     Dosage: UNK UKN, UNK
     Route: 048

REACTIONS (1)
  - Sudden death [Fatal]
